FAERS Safety Report 24291341 (Version 1)
Quarter: 2024Q3

REPORT INFORMATION
  Report Type: Spontaneous
  Country: US (occurrence: None)
  Receive Date: 20240906
  Receipt Date: 20240906
  Transmission Date: 20241017
  Serious: No
  Sender: DOMPE FARMACEUTICI
  Company Number: US-FARMAPROD-202308-202308-2522

PATIENT
  Sex: Male
  Weight: 65.77 kg

DRUGS (18)
  1. OXERVATE [Suspect]
     Active Substance: CENEGERMIN-BKBJ
     Indication: Neurotrophic keratopathy
     Route: 047
     Dates: start: 20230814
  2. OXERVATE [Suspect]
     Active Substance: CENEGERMIN-BKBJ
  3. OXERVATE [Suspect]
     Active Substance: CENEGERMIN-BKBJ
  4. ASPIRIN [Concomitant]
     Active Substance: ASPIRIN
  5. PROBIOTIC 10 B [Concomitant]
  6. VITAMINS [Concomitant]
     Active Substance: VITAMINS
  7. NIACIN [Concomitant]
     Active Substance: NIACIN
  8. FERRETTS [Concomitant]
     Dosage: 325(106)MG
  9. CALCIUM 500/VITAMIN D3 [Concomitant]
     Dosage: 500 MG-10
  10. TIMOLOL-BRIMONIDIN-DORZOLAMIDE [Concomitant]
  11. LATANOPROST [Concomitant]
     Active Substance: LATANOPROST
  12. ROSUVASTATIN CALCIUM [Concomitant]
     Active Substance: ROSUVASTATIN CALCIUM
  13. BRIMONIDINE TARTRATE/TIMOLOL [Concomitant]
  14. WARFARIN SODIUM [Concomitant]
     Active Substance: WARFARIN SODIUM
  15. ALLOPURINOL [Concomitant]
     Active Substance: ALLOPURINOL
  16. HYDROCHLOROTHIAZIDE\TRIAMTERENE [Concomitant]
     Active Substance: HYDROCHLOROTHIAZIDE\TRIAMTERENE
  17. ENTRESTO [Concomitant]
     Active Substance: SACUBITRIL\VALSARTAN
     Dosage: 24 MG-26 MG
  18. CITALOPRAM [Concomitant]
     Active Substance: CITALOPRAM\CITALOPRAM HYDROBROMIDE

REACTIONS (3)
  - Blood pressure increased [Unknown]
  - Migraine [Unknown]
  - Weight decreased [Unknown]
